FAERS Safety Report 6280520-8 (Version None)
Quarter: 2009Q3

REPORT INFORMATION
  Report Type: 
  Country: None (occurrence: None)
  Receive Date: 20090724
  Receipt Date: 20081001
  Transmission Date: 20100115
  Serious: No
  Sender: FDA-Public Use
  Company Number: A0744948A

PATIENT
  Age: 54 Year
  Sex: Male

DRUGS (2)
  1. AVANDIA [Suspect]
     Route: 048
     Dates: start: 20021001, end: 20021101
  2. GLUCOTROL [Concomitant]

REACTIONS (4)
  - FALL [None]
  - LIGAMENT RUPTURE [None]
  - MUSCLE RUPTURE [None]
  - WEIGHT INCREASED [None]
